FAERS Safety Report 14800331 (Version 1)
Quarter: 2018Q2

REPORT INFORMATION
  Report Type: Spontaneous
  Country: DE (occurrence: DE)
  Receive Date: 20180424
  Receipt Date: 20180424
  Transmission Date: 20180711
  Serious: Yes (Life-Threatening, Hospitalization)
  Sender: FDA-Public Use
  Company Number: DE-SA-A04200200079

PATIENT
  Age: 86 Year
  Sex: Female
  Weight: 56 kg

DRUGS (34)
  1. ASPIRIN. [Suspect]
     Active Substance: ASPIRIN
     Indication: COAGULOPATHY
     Route: 048
     Dates: start: 20000914, end: 20000917
  2. DECORTIN [Concomitant]
     Active Substance: PREDNISONE
     Indication: DERMATITIS BULLOUS
     Dosage: DOSE TEXT: BETWEEN 20-AUG-2000 AND 17-SEP-2000 DOSAGE REDUCED FROM 80 MG/D TO 40 MG/D
     Route: 048
     Dates: start: 20000820, end: 20000917
  3. RINGERS SOLUTION [Concomitant]
     Active Substance: CALCIUM CHLORIDE\POTASSIUM CHLORIDE\SODIUM CHLORIDE
     Indication: ELECTROLYTE DEPLETION
     Route: 042
     Dates: start: 20000913, end: 20000913
  4. RINGERS SOLUTION [Concomitant]
     Active Substance: CALCIUM CHLORIDE\POTASSIUM CHLORIDE\SODIUM CHLORIDE
     Indication: ELECTROLYTE DEPLETION
     Route: 042
     Dates: start: 20000914, end: 20000914
  5. MONO MACK - SLOW RELEASE [Concomitant]
     Indication: ANGINA PECTORIS
     Dosage: UNIT DOSE: 100 MG
     Route: 048
     Dates: start: 20000820, end: 20000917
  6. RINGERS SOLUTION [Concomitant]
     Active Substance: CALCIUM CHLORIDE\POTASSIUM CHLORIDE\SODIUM CHLORIDE
     Indication: FLUID REPLACEMENT
     Route: 042
     Dates: start: 20000913, end: 20000913
  7. COTRIM [Concomitant]
     Active Substance: SULFAMETHOXAZOLE\TRIMETHOPRIM
     Indication: CYSTITIS
     Route: 048
     Dates: start: 20000916, end: 20000917
  8. PLAVIX [Suspect]
     Active Substance: CLOPIDOGREL BISULFATE
     Indication: ANTIPLATELET THERAPY
     Dosage: UNIT DOSE: 75 MG
     Route: 048
     Dates: start: 20000913, end: 20000917
  9. CATAPRESAN [Suspect]
     Active Substance: CLONIDINE
     Indication: HYPERTENSION
     Dosage: DOSE TEXT: NOT REPORTED
     Route: 042
     Dates: start: 20000913, end: 20000913
  10. ACETYLSALICYLIC ACID [Suspect]
     Active Substance: ASPIRIN
     Indication: ANTIPLATELET THERAPY
     Dosage: UNIT DOSE: 100 MG
     Route: 048
     Dates: end: 20000831
  11. CORVATON - SLOW RELEASE ^HOECHST^ [Concomitant]
     Indication: CORONARY ARTERY DISEASE
     Dosage: UNIT DOSE: 8 MG
     Route: 048
     Dates: end: 20000914
  12. DUROGESIC [Concomitant]
     Active Substance: FENTANYL
     Indication: PAIN
     Dosage: UNIT DOSE: 1.666 MCG/MIN
     Route: 062
     Dates: start: 20000820, end: 20000916
  13. RINGERS SOLUTION [Concomitant]
     Active Substance: CALCIUM CHLORIDE\POTASSIUM CHLORIDE\SODIUM CHLORIDE
     Indication: FLUID REPLACEMENT
     Route: 042
     Dates: start: 20000914, end: 20000914
  14. NOCTAMID [Suspect]
     Active Substance: LORMETAZEPAM
     Indication: SEDATION
     Dosage: UNIT DOSE: 1 MG
     Route: 048
     Dates: start: 20000913, end: 20000913
  15. XYLOCAINE [Suspect]
     Active Substance: LIDOCAINE HYDROCHLORIDE
     Indication: LOCAL ANAESTHESIA
     Dosage: DOSE TEXT: NOT REPORTED
     Route: 058
     Dates: start: 20000913, end: 20000913
  16. ORTHO-GYNEST [Concomitant]
     Indication: VAGINAL DISORDER
     Dosage: UNIT DOSE: .5 MG
     Route: 067
     Dates: start: 20000820, end: 20000906
  17. CONTRAST MEDIA [Suspect]
     Active Substance: UNSPECIFIED INGREDIENT
     Indication: CORONARY ARTERY SURGERY
     Route: 042
     Dates: start: 20000913, end: 20000913
  18. ANTRA [Concomitant]
     Active Substance: OMEPRAZOLE
     Indication: PROPHYLAXIS AGAINST GASTROINTESTINAL ULCER
     Dosage: UNIT DOSE: 20 MG
     Route: 048
     Dates: start: 20000820, end: 20000917
  19. PLAVIX [Suspect]
     Active Substance: CLOPIDOGREL BISULFATE
     Indication: ANTIPLATELET THERAPY
     Route: 048
     Dates: start: 20000828, end: 20000831
  20. NORADRENALINE [Suspect]
     Active Substance: NOREPINEPHRINE
     Indication: CORONARY ARTERY SURGERY
     Dosage: DOSE TEXT: NOT REPORTED
     Route: 042
     Dates: start: 20000913, end: 20000913
  21. FRAGMIN /SWE/ [Concomitant]
     Indication: THROMBOSIS PROPHYLAXIS
     Dosage: UNIT DOSE: 2500 IU AXA DOSE:2500 ANTI-XA ACTIVITY INTERNATIONAL UNIT(S)
     Route: 058
     Dates: start: 20000820, end: 20000917
  22. CALCIUM [Concomitant]
     Active Substance: CALCIUM
     Indication: OSTEOPOROSIS
     Dosage: DOSE TEXT: NOT REPORTED
     Route: 048
     Dates: start: 20000820, end: 20000917
  23. EUGLUCON [Suspect]
     Active Substance: GLYBURIDE
     Indication: TYPE 2 DIABETES MELLITUS
     Dosage: UNIT DOSE: 3.5 MG
     Route: 048
     Dates: start: 20000820, end: 20000917
  24. VIOXX [Suspect]
     Active Substance: ROFECOXIB
     Indication: RHEUMATOID ARTHRITIS
     Dosage: UNIT DOSE: 25 MG
     Route: 048
     Dates: start: 20000907, end: 20000917
  25. CATAPRESAN [Suspect]
     Active Substance: CLONIDINE
     Indication: CORONARY ARTERY SURGERY
     Dosage: DOSE TEXT: NOT REPORTED
     Route: 042
     Dates: start: 20000913, end: 20000913
  26. INSULIN [Concomitant]
     Active Substance: INSULIN NOS
     Indication: INSULIN-REQUIRING TYPE 2 DIABETES MELLITUS
     Dosage: DOSE TEXT: GLUCOSE VALUE DEPENDENT
     Route: 058
     Dates: start: 20000820, end: 20000917
  27. GLUCOSE [Concomitant]
     Active Substance: DEXTROSE
     Indication: CARDIOVASCULAR DISORDER
     Dosage: DOSE TEXT: GLUCOSE VALUE DEPENDENT
     Route: 042
     Dates: start: 20000913, end: 20000913
  28. SOLU-DECORTIN-H [Concomitant]
     Active Substance: PREDNISOLONE SODIUM SUCCINATE
     Indication: DRUG ERUPTION
     Dosage: UNIT DOSE: 100 MG
     Route: 042
     Dates: start: 20000917, end: 20000917
  29. NOVALGIN (METAMIZOLE SODIUM) [Suspect]
     Active Substance: METAMIZOLE SODIUM
     Indication: PAIN
     Dosage: UNIT DOSE: 500 MG/ML
     Route: 048
     Dates: start: 20000820, end: 20000917
  30. DIAZEPAM. [Suspect]
     Active Substance: DIAZEPAM
     Indication: INDUCTION OF ANAESTHESIA
     Route: 042
     Dates: start: 20000913, end: 20000913
  31. ACETYLSALICYLIC ACID [Suspect]
     Active Substance: ASPIRIN
     Indication: ANTIPLATELET THERAPY
     Dosage: UNIT DOSE: 100 MG
     Route: 048
     Dates: start: 20000914, end: 20000917
  32. TAVEGIL /GFR/ [Concomitant]
     Indication: PEMPHIGOID
     Dosage: UNIT DOSE: 1 MG
     Route: 048
     Dates: start: 20000820, end: 20000828
  33. UNAT [Concomitant]
     Active Substance: TORSEMIDE
     Indication: CARDIAC FAILURE
     Dosage: UNIT DOSE: 10 MG
     Route: 048
     Dates: start: 20000820, end: 20000917
  34. GLUCOSE [Concomitant]
     Active Substance: DEXTROSE
     Indication: HYPERINSULINAEMIC HYPOGLYCAEMIA
     Dosage: DOSE TEXT: GLUCOSE VALUE DEPENDENT
     Route: 042
     Dates: start: 20000913, end: 20000913

REACTIONS (7)
  - Blister [Recovering/Resolving]
  - Conjunctivitis [Recovering/Resolving]
  - Toxic epidermal necrolysis [Recovering/Resolving]
  - Mouth ulceration [Recovering/Resolving]
  - Mucosal erosion [Recovering/Resolving]
  - Pruritus generalised [Recovered/Resolved]
  - Generalised erythema [Recovered/Resolved]

NARRATIVE: CASE EVENT DATE: 20000916
